FAERS Safety Report 6108862-7 (Version None)
Quarter: 2009Q1

REPORT INFORMATION
  Report Type: 
  Country: None (occurrence: None)
  Receive Date: 20090306
  Receipt Date: 20090219
  Transmission Date: 20090719
  Serious: Yes (Life-Threatening, Hospitalization)
  Sender: FDA-Public Use
  Company Number: 2009EU000787

PATIENT
  Sex: Male

DRUGS (1)
  1. PROGRAF [Suspect]
     Dosage: 3 MG, BID, ORAL
     Route: 048

REACTIONS (8)
  - ADENOMA BENIGN [None]
  - ANASTOMOTIC COMPLICATION [None]
  - COLON CANCER [None]
  - FISTULA [None]
  - GASTROINTESTINAL TRACT ADENOMA [None]
  - HAEMODIALYSIS [None]
  - PERITONITIS [None]
  - RENAL FAILURE ACUTE [None]
